FAERS Safety Report 10561440 (Version 2)
Quarter: 2014Q4

REPORT INFORMATION
  Report Type: Spontaneous
  Country: SE (occurrence: SE)
  Receive Date: 20141103
  Receipt Date: 20141230
  Transmission Date: 20150529
  Serious: Yes (Hospitalization)
  Sender: FDA-Public Use
  Company Number: SE-PFIZER INC-2014300559

PATIENT
  Age: 56 Year
  Sex: Male

DRUGS (4)
  1. MORPHINE SULFATE. [Suspect]
     Active Substance: MORPHINE SULFATE
     Indication: PAIN
     Dosage: 25 TABLETS A 10MG
     Route: 048
     Dates: start: 20130713, end: 20130713
  2. PANODIL [Concomitant]
     Active Substance: ACETAMINOPHEN
     Dosage: UNK
  3. ANTABUSE [Concomitant]
     Active Substance: DISULFIRAM
     Dosage: UNK
  4. DOLCONTIN [Suspect]
     Active Substance: MORPHINE
     Indication: PAIN
     Dosage: 25 TABLETS A 10 MG
     Route: 048
     Dates: start: 20130713, end: 20130713

REACTIONS (3)
  - Akathisia [Recovered/Resolved]
  - Toxicity to various agents [Recovered/Resolved]
  - Depressed level of consciousness [Recovered/Resolved]

NARRATIVE: CASE EVENT DATE: 20130713
